FAERS Safety Report 17338378 (Version 2)
Quarter: 2020Q1

REPORT INFORMATION
  Report Type: Report from Study
  Country: CA (occurrence: CA)
  Receive Date: 20200129
  Receipt Date: 20200311
  Transmission Date: 20200409
  Serious: Yes (Hospitalization)
  Sender: FDA-Public Use
  Company Number: NVSC2019CA065396

PATIENT
  Age: 73 Year
  Sex: Male

DRUGS (2)
  1. DABRAFENIB [Suspect]
     Active Substance: DABRAFENIB
     Indication: THYROID CANCER METASTATIC
     Dosage: 150 MG, BID
     Route: 048
     Dates: start: 20191122
  2. TRAMETINIB [Suspect]
     Active Substance: TRAMETINIB
     Indication: THYROID CANCER METASTATIC
     Dosage: 150 MG, BID
     Route: 048
     Dates: start: 20191122

REACTIONS (7)
  - Pulmonary embolism [Recovered/Resolved]
  - Dyspnoea [Recovered/Resolved]
  - Pyrexia [Recovered/Resolved]
  - Urinary tract infection [Recovered/Resolved]
  - Asthenia [Recovered/Resolved]
  - Incorrect dose administered [Unknown]
  - Enterococcal infection [Recovered/Resolved]

NARRATIVE: CASE EVENT DATE: 20191203
